FAERS Safety Report 10484243 (Version 22)
Quarter: 2022Q2

REPORT INFORMATION
  Report Type: Report from Study
  Country: CA (occurrence: CA)
  Receive Date: 20140930
  Receipt Date: 20220407
  Transmission Date: 20220721
  Serious: Yes (Death, Hospitalization, Other)
  Sender: FDA-Public Use
  Company Number: CA-002147023-PHHY2014CA081093

PATIENT

DRUGS (15)
  1. RUXOLITINIB [Suspect]
     Active Substance: RUXOLITINIB
     Indication: Myelofibrosis
     Dosage: 20 MG, BID
     Route: 048
     Dates: start: 20140527
  2. RUXOLITINIB [Suspect]
     Active Substance: RUXOLITINIB
     Dosage: 10 MG, BID
     Route: 048
     Dates: start: 20140723
  3. RUXOLITINIB [Suspect]
     Active Substance: RUXOLITINIB
     Dosage: 15 MG, (10 MG ONCE IN MORNING AND 5 MG ONCE IN EVENING)
     Route: 048
     Dates: start: 20140818
  4. RUXOLITINIB [Suspect]
     Active Substance: RUXOLITINIB
     Dosage: 10 MG, BID
     Route: 048
  5. RUXOLITINIB [Suspect]
     Active Substance: RUXOLITINIB
     Dosage: 10 MG, BID
     Route: 048
     Dates: start: 20140527
  6. BISOPROLOL [Concomitant]
     Active Substance: BISOPROLOL
     Indication: Product used for unknown indication
     Dosage: UNK
     Route: 065
  7. WARFARIN SODIUM [Concomitant]
     Active Substance: WARFARIN SODIUM
     Indication: Product used for unknown indication
     Dosage: 6 MG, QD
     Route: 065
  8. WARFARIN SODIUM [Concomitant]
     Active Substance: WARFARIN SODIUM
     Dosage: 6 MG, QW4 (4 TIMES A WEEK)
     Route: 065
  9. WARFARIN SODIUM [Concomitant]
     Active Substance: WARFARIN SODIUM
     Dosage: 5 MG, QW3 (THREE TIMES PER WEEK)
     Route: 065
  10. TYLENOL [Concomitant]
     Active Substance: ACETAMINOPHEN
     Indication: Arthritis
     Dosage: 2 DF, Q8H
     Route: 065
  11. TYLENOL [Concomitant]
     Active Substance: ACETAMINOPHEN
     Indication: Groin pain
  12. TYLENOL [Concomitant]
     Active Substance: ACETAMINOPHEN
     Indication: Muscle strain
  13. WARFARIN [Concomitant]
     Active Substance: WARFARIN
     Indication: Thrombosis
     Dosage: 5 MG, QD
     Route: 065
  14. WARFARIN [Concomitant]
     Active Substance: WARFARIN
     Indication: International normalised ratio decreased
     Dosage: 5 MG - 6 MG, (5 MG QD ALTERNATING WITH 6 MG EVERY THREE DAYS)
     Route: 065
  15. WARFARIN [Concomitant]
     Active Substance: WARFARIN
     Indication: International normalised ratio fluctuation

REACTIONS (37)
  - Muscle strain [Unknown]
  - Pain in extremity [Unknown]
  - Haematoma [Unknown]
  - Cystitis [Unknown]
  - Contusion [Recovering/Resolving]
  - Infected cyst [Unknown]
  - Flatulence [Recovered/Resolved]
  - Pelvic fracture [Unknown]
  - Pain [Unknown]
  - Pollakiuria [Unknown]
  - Weight increased [Unknown]
  - Flatulence [Unknown]
  - Groin pain [Unknown]
  - Asthenia [Unknown]
  - Haemoglobin decreased [Recovering/Resolving]
  - Coagulopathy [Unknown]
  - Limb injury [Unknown]
  - International normalised ratio fluctuation [Unknown]
  - International normalised ratio decreased [Unknown]
  - Application site infection [Unknown]
  - Blood iron decreased [Recovering/Resolving]
  - Dysuria [Unknown]
  - Urinary tract infection [Unknown]
  - Death [Fatal]
  - Skin atrophy [Recovered/Resolved]
  - Platelet count decreased [Unknown]
  - Pneumonia [Recovered/Resolved]
  - Abdominal adhesions [Unknown]
  - Movement disorder [Unknown]
  - Fatigue [Unknown]
  - Fall [Unknown]
  - Mass [Unknown]
  - Erythema [Unknown]
  - Musculoskeletal stiffness [Unknown]
  - Gastrointestinal disorder [Recovering/Resolving]
  - Urticaria [Recovered/Resolved]
  - White blood cell count decreased [Unknown]

NARRATIVE: CASE EVENT DATE: 20220329
